FAERS Safety Report 8731552 (Version 3)
Quarter: 2012Q4

REPORT INFORMATION
  Report Type: 
  Country: US (occurrence: US)
  Receive Date: 20120820
  Receipt Date: 20120926
  Transmission Date: 20130627
  Serious: No
  Sender: FDA-Public Use
  Company Number: US-PFIZER INC-2012201265

PATIENT
  Age: 51 Year
  Sex: Female
  Weight: 72.56 kg

DRUGS (2)
  1. PRISTIQ [Suspect]
     Indication: DEPRESSION
     Dosage: 50 mg, Daily
     Route: 048
     Dates: start: 20120514, end: 20120816
  2. LORAZEPAM [Concomitant]
     Indication: ANXIETY
     Dosage: 1 mg, 2x/day
     Dates: start: 2007

REACTIONS (4)
  - Weight decreased [Unknown]
  - Decreased appetite [Unknown]
  - Medication residue [Unknown]
  - Condition aggravated [Not Recovered/Not Resolved]
